FAERS Safety Report 11101877 (Version 1)
Quarter: 2015Q2

REPORT INFORMATION
  Report Type: Spontaneous
  Country: US (occurrence: US)
  Receive Date: 20150510
  Receipt Date: 20150510
  Transmission Date: 20150821
  Serious: No
  Sender: FDA-Public Use
  Company Number: US-ASTRAZENECA-2015SE38533

PATIENT
  Age: 872 Month
  Sex: Female
  Weight: 109.3 kg

DRUGS (8)
  1. BYDUREON [Suspect]
     Active Substance: EXENATIDE
     Indication: DIABETES MELLITUS
     Dosage: 2 MG, ONCE A WEEK, VIAL
     Route: 058
     Dates: end: 201412
  2. SINGULAIRE [Concomitant]
     Indication: MULTIPLE ALLERGIES
  3. LEVAMIR [Concomitant]
     Indication: DIABETES MELLITUS
     Dosage: 52 UNITS IN MORNING AND 68 AT NIGHT
  4. METFORMIN [Concomitant]
     Active Substance: METFORMIN HYDROCHLORIDE
     Indication: DIABETES MELLITUS
     Dosage: 2 IN AM AND 2 AT NIGHT
  5. MITARDIS [Concomitant]
     Indication: CARDIAC DISORDER
  6. NOVOLOG [Concomitant]
     Active Substance: INSULIN ASPART
     Indication: DIABETES MELLITUS
  7. BYDUREON [Suspect]
     Active Substance: EXENATIDE
     Indication: DIABETES MELLITUS
     Route: 058
     Dates: start: 201412
  8. COUMADIN [Concomitant]
     Active Substance: WARFARIN SODIUM
     Indication: BLOOD DISORDER

REACTIONS (3)
  - Injection site mass [Not Recovered/Not Resolved]
  - Injection site haemorrhage [Recovered/Resolved]
  - Epistaxis [Unknown]

NARRATIVE: CASE EVENT DATE: 201403
